FAERS Safety Report 4316569-1 (Version None)
Quarter: 2004Q1

REPORT INFORMATION
  Report Type: 
  Country: None (occurrence: None)
  Receive Date: 20040308
  Receipt Date: 20031124
  Transmission Date: 20041129
  Serious: No
  Sender: FDA-Public Use
  Company Number: PHEH2003US10841

PATIENT
  Age: 63 Year
  Sex: Female

DRUGS (7)
  1. GLEEVEC [Suspect]
     Indication: CHRONIC MYELOID LEUKAEMIA
     Dosage: 300 MG, QD, ORAL
     Route: 048
  2. SYNTHROID [Concomitant]
  3. MULTI-VITAMINS VITAFIT (VITAMINS NOS) [Concomitant]
  4. ESTER-C [Concomitant]
  5. ALPHOLOPOIC ACID (ALPRAZOLAM) [Concomitant]
  6. NASONEX [Concomitant]
  7. KYTRIL [Concomitant]

REACTIONS (8)
  - EYE SWELLING [None]
  - HERPES SIMPLEX [None]
  - LACRIMATION INCREASED [None]
  - RHINITIS [None]
  - ROSACEA [None]
  - SCAB [None]
  - SUNBURN [None]
  - VITREOUS FLOATERS [None]
